FAERS Safety Report 6572632-6 (Version None)
Quarter: 2010Q1

REPORT INFORMATION
  Report Type: 
  Country: None (occurrence: None)
  Receive Date: 20100205
  Receipt Date: 20100129
  Transmission Date: 20100710
  Serious: Yes (Other)
  Sender: FDA-Public Use
  Company Number: GB-JNJCH-2010002353

PATIENT
  Sex: Male

DRUGS (2)
  1. REGAINE EXTRA STRENGTH [Suspect]
     Indication: ALOPECIA
     Dosage: TEXT:AS DIRECTED ONCE A DAY
     Route: 061
     Dates: start: 20091110, end: 20100111
  2. PRAVASTATIN SODIUM [Concomitant]
     Indication: BLOOD CHOLESTEROL INCREASED
     Dosage: TEXT:10MG
     Route: 065

REACTIONS (7)
  - APPLICATION SITE ERYTHEMA [None]
  - APPLICATION SITE INFLAMMATION [None]
  - APPLICATION SITE IRRITATION [None]
  - APPLICATION SITE PRURITUS [None]
  - APPLICATION SITE VESICLES [None]
  - PRODUCT QUALITY ISSUE [None]
  - WOUND SECRETION [None]
